FAERS Safety Report 8585426-7 (Version None)
Quarter: 2012Q3

REPORT INFORMATION
  Report Type: 
  Country: None (occurrence: None)
  Receive Date: 20120810
  Receipt Date: 20120803
  Transmission Date: 20120928
  Serious: No
  Sender: FDA-Public Use
  Company Number: US-PFIZER INC-2012190672

PATIENT
  Age: 35 Year
  Sex: Male

DRUGS (7)
  1. LIDODERM [Concomitant]
     Dosage: 700MG/PATCH, PLACE 1 PATCH ONTO THE SKIN DAILY
     Route: 062
  2. VASOTEC [Concomitant]
     Dosage: 20 MG, TAKE 1 TABLET DAILY
     Route: 048
  3. MOTRIN [Concomitant]
     Indication: PAIN
     Dosage: 800 MG, TAKE 1 TABLET 2X/DAY AS NEEDED
     Route: 048
  4. NEURONTIN [Suspect]
     Dosage: 300 MG, TAKE 1 TABLET 2X/DAY
     Route: 048
  5. NEURONTIN [Suspect]
     Dosage: 600 MG, TAKE 1 TABLET 3X/DAY
     Route: 048
  6. ADVIL [Concomitant]
     Indication: PAIN
     Dosage: 800 MG, TAKE 1 TABLET 2X/DAY AS NEEDED
     Route: 048
  7. PRILOSEC [Concomitant]
     Dosage: 20 MG, TAKE 1 CAPSULE DAILY
     Route: 048

REACTIONS (4)
  - ESSENTIAL HYPERTENSION [None]
  - BACK PAIN [None]
  - PAIN [None]
  - GASTROOESOPHAGEAL REFLUX DISEASE [None]
